FAERS Safety Report 25322177 (Version 1)
Quarter: 2025Q2

REPORT INFORMATION
  Report Type: Spontaneous
  Country: CN (occurrence: CN)
  Receive Date: 20250516
  Receipt Date: 20250516
  Transmission Date: 20250717
  Serious: Yes (Other)
  Sender: ROCHE
  Company Number: CN-ROCHE-10000272793

PATIENT
  Age: 67 Year
  Sex: Female

DRUGS (6)
  1. BEVACIZUMAB [Suspect]
     Active Substance: BEVACIZUMAB
     Indication: Non-small cell lung cancer
     Route: 042
  2. PEMBROLIZUMAB [Suspect]
     Active Substance: PEMBROLIZUMAB
     Indication: Non-small cell lung cancer
     Route: 042
  3. PEMETREXED [Suspect]
     Active Substance: PEMETREXED
     Indication: Non-small cell lung cancer
     Route: 042
  4. OSIMERTINIB [Concomitant]
     Active Substance: OSIMERTINIB
  5. CATEQUENTINIB [Concomitant]
     Active Substance: CATEQUENTINIB
  6. AUMOLERTINIB [Concomitant]
     Active Substance: AUMOLERTINIB

REACTIONS (2)
  - Myelosuppression [Unknown]
  - Infection [Unknown]
